FAERS Safety Report 21127688 (Version 5)
Quarter: 2023Q1

REPORT INFORMATION
  Report Type: Spontaneous
  Country: US (occurrence: US)
  Receive Date: 20220725
  Receipt Date: 20230227
  Transmission Date: 20230417
  Serious: Yes (Other)
  Sender: FDA-Public Use
  Company Number: US-PFIZER INC-202200157575

PATIENT
  Age: 66 Year
  Sex: Female
  Weight: 67.12 kg

DRUGS (2)
  1. PREMARIN [Suspect]
     Active Substance: ESTROGENS, CONJUGATED
     Dosage: 0.5 G, 2X/WEEK (0.5/HALF GRAM IN THE VAGINA 2X WEEKLY)
     Route: 067
  2. ESCITALOPRAM [Concomitant]
     Active Substance: ESCITALOPRAM OXALATE
     Indication: Anxiety
     Dosage: 10 MG, 1X/DAY
     Dates: start: 202209

REACTIONS (4)
  - Diverticulitis [Unknown]
  - Product prescribing error [Unknown]
  - Illness [Unknown]
  - Food allergy [Unknown]
